FAERS Safety Report 9210992 (Version 3)
Quarter: 2013Q2

REPORT INFORMATION
  Report Type: Spontaneous
  Country: IT (occurrence: IT)
  Receive Date: 20130404
  Receipt Date: 20130517
  Transmission Date: 20140414
  Serious: Yes (Hospitalization, Other)
  Sender: FDA-Public Use
  Company Number: IT-BRISTOL-MYERS SQUIBB COMPANY-18723361

PATIENT
  Age: 92 Year
  Sex: Female

DRUGS (5)
  1. COUMADIN TABS 5 MG [Suspect]
     Dosage: 1DF: 0.25UNIT
     Route: 048
     Dates: start: 20110607, end: 20130327
  2. NEXIUM [Interacting]
     Indication: PROPHYLAXIS AGAINST GASTROINTESTINAL ULCER
     Route: 048
     Dates: start: 20130208, end: 20130219
  3. ALTIAZEM [Concomitant]
     Dosage: 60 MG TABLETS?1DF: 2 UNIT
     Route: 048
  4. NITROCOR PATCH [Concomitant]
     Route: 062
  5. ZYLORIC [Concomitant]
     Dosage: 300 MG TABLETS?1DF: 1 UNIT
     Route: 048

REACTIONS (2)
  - International normalised ratio increased [Recovered/Resolved]
  - Drug interaction [Unknown]
